FAERS Safety Report 7238025-3 (Version None)
Quarter: 2011Q1

REPORT INFORMATION
  Report Type: 
  Country: None (occurrence: None)
  Receive Date: 20110121
  Receipt Date: 20110118
  Transmission Date: 20110831
  Serious: Yes (Other)
  Sender: FDA-Public Use
  Company Number: A0906905A

PATIENT
  Age: 69 Year
  Sex: Female

DRUGS (5)
  1. XANAX [Concomitant]
  2. ALBUTEROL SULFATE [Concomitant]
     Route: 055
  3. ADVAIR [Suspect]
     Indication: ASTHMA
     Dosage: 1PUFF TWICE PER DAY
     Route: 055
  4. IPRATROPIUM BROMIDE [Concomitant]
  5. LEVOXYL [Concomitant]

REACTIONS (10)
  - DYSGEUSIA [None]
  - FUNGAL INFECTION [None]
  - APHASIA [None]
  - OROPHARYNGITIS FUNGAL [None]
  - CHEST DISCOMFORT [None]
  - LARYNGEAL OEDEMA [None]
  - DRUG INEFFECTIVE [None]
  - DYSPHONIA [None]
  - BREATH ODOUR [None]
  - OROPHARYNGEAL PAIN [None]
